FAERS Safety Report 5453731-9 (Version None)
Quarter: 2007Q3

REPORT INFORMATION
  Report Type: 
  Country: None (occurrence: None)
  Receive Date: 20070917
  Receipt Date: 20070907
  Transmission Date: 20080115
  Serious: Yes (Hospitalization)
  Sender: FDA-Public Use
  Company Number: JP-BRISTOL-MYERS SQUIBB COMPANY-13908363

PATIENT
  Age: 81 Year
  Sex: Male

DRUGS (5)
  1. GATIFLOXACIN [Suspect]
     Indication: PYELONEPHRITIS
     Route: 048
     Dates: start: 20070801
  2. PONTAL [Concomitant]
     Route: 048
  3. BASEN [Concomitant]
     Route: 048
  4. GLYBURIDE [Concomitant]
     Route: 048
  5. URIEF [Concomitant]
     Route: 048

REACTIONS (1)
  - HYPOGLYCAEMIA [None]
